FAERS Safety Report 24748629 (Version 1)
Quarter: 2024Q4

REPORT INFORMATION
  Report Type: Spontaneous
  Country: US (occurrence: US)
  Receive Date: 20241218
  Receipt Date: 20241218
  Transmission Date: 20250114
  Serious: No
  Sender: ITALFARMACO SPA
  Company Number: US-ITALFARMACO SPA-2167359

PATIENT
  Age: 24 Year
  Sex: Male
  Weight: 100.5 kg

DRUGS (1)
  1. DUVYZAT [Suspect]
     Active Substance: GIVINOSTAT
     Indication: Muscular dystrophy

REACTIONS (2)
  - Platelet count decreased [Not Recovered/Not Resolved]
  - Hordeolum [Not Recovered/Not Resolved]
